FAERS Safety Report 8616905-1 (Version None)
Quarter: 2012Q3

REPORT INFORMATION
  Report Type: 
  Country: None (occurrence: None)
  Receive Date: 20120823
  Receipt Date: 20120810
  Transmission Date: 20120928
  Serious: Yes (Other)
  Sender: FDA-Public Use
  Company Number: US-009507513-1208USA006084

PATIENT

DRUGS (1)
  1. JANUVIA [Suspect]
     Dosage: 25 MG, QD
     Route: 048

REACTIONS (2)
  - UNDERDOSE [None]
  - PANCREATITIS [None]
